FAERS Safety Report 7502386-8 (Version None)
Quarter: 2011Q2

REPORT INFORMATION
  Report Type: 
  Country: None (occurrence: None)
  Receive Date: 20110525
  Receipt Date: 20110518
  Transmission Date: 20111010
  Serious: Yes (Death)
  Sender: FDA-Public Use
  Company Number: KR-ASTELLAS-2011US002349

PATIENT
  Age: 63 Year
  Sex: Female

DRUGS (3)
  1. AMBISOME [Suspect]
     Indication: ASPERGILLOSIS
     Dosage: UNK
     Route: 065
  2. CASPOFUNGIN ACETATE [Suspect]
     Indication: ASPERGILLOSIS
     Dosage: 50 MG, UID/QD
     Route: 065
  3. AMPHOTERICIN B [Suspect]
     Indication: ASPERGILLOSIS
     Dosage: UNK
     Route: 065

REACTIONS (1)
  - DRUG INEFFECTIVE [None]
